FAERS Safety Report 9129475 (Version 2)
Quarter: 2013Q4

REPORT INFORMATION
  Report Type: Report from Study
  Country: GB (occurrence: GB)
  Receive Date: 20130228
  Receipt Date: 20131014
  Transmission Date: 20140711
  Serious: Yes (Hospitalization)
  Sender: FDA-Public Use
  Company Number: GB-GLAXOSMITHKLINE-B0864478B

PATIENT
  Sex: Female

DRUGS (2)
  1. LAPATINIB [Suspect]
     Indication: METASTASES TO CENTRAL NERVOUS SYSTEM
     Dosage: 1250MG PER DAY
     Route: 048
     Dates: start: 20130114
  2. CAPECITABINE [Suspect]
     Indication: METASTASES TO CENTRAL NERVOUS SYSTEM
     Dosage: 2000MG TWICE PER DAY
     Route: 048
     Dates: start: 20130114, end: 20130125

REACTIONS (2)
  - Dyspnoea [Unknown]
  - Chest pain [Unknown]
